FAERS Safety Report 4532366-6 (Version None)
Quarter: 2004Q4

REPORT INFORMATION
  Report Type: 
  Country: None (occurrence: None)
  Receive Date: 20041220
  Receipt Date: 20031015
  Transmission Date: 20050328
  Serious: Yes (Hospitalization, Disabling)
  Sender: FDA-Public Use
  Company Number: FR-MERCK-0310FRA00043

PATIENT
  Age: 60 Year
  Sex: Male

DRUGS (8)
  1. ZOCOR [Suspect]
     Indication: HYPERCHOLESTEROLAEMIA
     Route: 048
     Dates: start: 20020101, end: 20030101
  2. PERINDOPRIL ERBUMINE [Concomitant]
     Route: 048
  3. HYDROQUINIDINE HYDROCHLORIDE [Concomitant]
     Route: 048
  4. VERAPAMIL HYDROCHLORIDE [Concomitant]
     Route: 048
  5. FLUINDIONE [Concomitant]
     Route: 048
  6. BUMETANIDE [Concomitant]
     Route: 048
  7. COLCHICINE [Concomitant]
     Route: 048
  8. ALLOPURINOL [Concomitant]
     Route: 048

REACTIONS (4)
  - MUSCULAR WEAKNESS [None]
  - MYOPATHY [None]
  - NERVOUS SYSTEM DISORDER [None]
  - WEIGHT DECREASED [None]
